FAERS Safety Report 16474306 (Version 1)
Quarter: 2019Q2

REPORT INFORMATION
  Report Type: Report from Study
  Country: US (occurrence: US)
  Receive Date: 20190625
  Receipt Date: 20190625
  Transmission Date: 20190711
  Serious: Yes (Death)
  Sender: FDA-Public Use
  Company Number: US-BEH-2019103211

PATIENT
  Age: 40 Year
  Sex: Female

DRUGS (5)
  1. ACETAMINOPHEN. [Concomitant]
     Active Substance: ACETAMINOPHEN
     Indication: PREMEDICATION
     Route: 065
  2. HUMAN IMMUNOGLOBULIN (GENERIC) [Suspect]
     Active Substance: HUMAN IMMUNOGLOBULIN G
     Indication: ANTISYNTHETASE SYNDROME
     Dosage: BRIDGE THERAPY (11 MONTHS EARLIER)
     Route: 042
  3. HUMAN IMMUNOGLOBULIN (GENERIC) [Suspect]
     Active Substance: HUMAN IMMUNOGLOBULIN G
     Indication: INTERSTITIAL LUNG DISEASE
     Dosage: 400 MILLIGRAM/KILOGRAM, QD 5 DAYS PER MONTH FOR 6 MONTHS
     Route: 042
  4. AZATHIOPRINE. [Concomitant]
     Active Substance: AZATHIOPRINE
     Route: 065
  5. METHYLPREDNISOLONE. [Concomitant]
     Active Substance: METHYLPREDNISOLONE
     Indication: PREMEDICATION
     Route: 042

REACTIONS (3)
  - Drug ineffective for unapproved indication [Fatal]
  - Product use in unapproved indication [Fatal]
  - Urticaria [Unknown]
